FAERS Safety Report 5170439-8 (Version None)
Quarter: 2006Q4

REPORT INFORMATION
  Report Type: 
  Country: None (occurrence: None)
  Receive Date: 20061212
  Receipt Date: 20061206
  Transmission Date: 20070319
  Serious: Yes (Other)
  Sender: FDA-Public Use
  Company Number: IT-ROXANE LABORATORIES, INC-2006-BP-14192RO

PATIENT
  Age: 58 Year
  Sex: Male

DRUGS (4)
  1. PREDNISONE TAB [Suspect]
     Indication: MULTIPLE MYELOMA
     Route: 048
  2. MELPHALAN [Suspect]
     Indication: MULTIPLE MYELOMA
     Route: 048
  3. PAMIDRONATE DISODIUM [Suspect]
     Indication: PROPHYLAXIS
     Route: 042
  4. ZOLEDRONATE [Suspect]
     Indication: PROPHYLAXIS
     Route: 042

REACTIONS (1)
  - OSTEONECROSIS [None]
